FAERS Safety Report 9484093 (Version 2)
Quarter: 2013Q3

REPORT INFORMATION
  Report Type: Spontaneous
  Country: CA (occurrence: CA)
  Receive Date: 20130828
  Receipt Date: 20130828
  Transmission Date: 20140515
  Serious: Yes (Other)
  Sender: FDA-Public Use
  Company Number: CA-AMGEN-KDL365370

PATIENT
  Age: 61 Year
  Sex: Female
  Weight: 63.6 kg

DRUGS (9)
  1. ENBREL [Suspect]
     Indication: PSORIASIS
     Dosage: UNK UNK, 2 TIMES/WK
     Route: 065
     Dates: start: 20090903
  2. ATORVASTATIN CALCIUM [Concomitant]
     Dosage: UNK UNK, UNK
  3. SPIRONOLACTONE [Concomitant]
     Dosage: 50 MG, BID
  4. MAGNESIUM [Concomitant]
     Dosage: 150 MG, QD
  5. RABEPRAZOLE [Concomitant]
     Dosage: UNK UNK, UNK
  6. VITAMIN B COMPLEX [Concomitant]
     Dosage: UNK UNK, UNK
  7. ASCORBIC ACID [Concomitant]
     Dosage: UNK UNK, UNK
  8. DIAZEPAM [Concomitant]
     Dosage: UNK UNK, UNK
  9. METFORMIN [Concomitant]
     Dosage: UNK UNK, UNK

REACTIONS (8)
  - Loss of consciousness [Recovered/Resolved]
  - Fall [Recovered/Resolved]
  - Laceration [Unknown]
  - Contusion [Not Recovered/Not Resolved]
  - Neck pain [Recovered/Resolved]
  - Pain in extremity [Not Recovered/Not Resolved]
  - Wound infection [Unknown]
  - Psoriasis [Not Recovered/Not Resolved]
